FAERS Safety Report 22131224 (Version 1)
Quarter: 2023Q1

REPORT INFORMATION
  Report Type: Spontaneous
  Country: US (occurrence: None)
  Receive Date: 20230322
  Receipt Date: 20230322
  Transmission Date: 20230418
  Serious: Yes (Other)
  Sender: FDA-Public Use
  Company Number: None

PATIENT
  Age: 58 Year
  Sex: Female
  Weight: 76.5 kg

DRUGS (1)
  1. CAPLYTA [Suspect]
     Active Substance: LUMATEPERONE
     Indication: Bipolar disorder
     Dosage: FREQUENCY : DAILY;?
     Route: 048
     Dates: start: 20230309, end: 20230316

REACTIONS (5)
  - Pruritus [None]
  - Erythema [None]
  - Therapy cessation [None]
  - Erythema [None]
  - Dysphonia [None]

NARRATIVE: CASE EVENT DATE: 20230315
